FAERS Safety Report 4986482-5 (Version None)
Quarter: 2006Q2

REPORT INFORMATION
  Report Type: 
  Country: None (occurrence: None)
  Receive Date: 20060428
  Receipt Date: 20060215
  Transmission Date: 20061013
  Serious: Yes (Other)
  Sender: FDA-Public Use
  Company Number: US-ROCHE-436785

PATIENT
  Age: 40 Year
  Sex: Female
  Weight: 56.2 kg

DRUGS (7)
  1. PEGASYS [Suspect]
     Indication: HEPATITIS C
     Route: 058
     Dates: start: 20051001, end: 20060316
  2. COPEGUS [Suspect]
     Indication: HEPATITIS C
     Dosage: 600 MG IN AM AND 400 MG IN PM.
     Route: 048
     Dates: start: 20051001, end: 20060316
  3. LIPITOR [Concomitant]
     Route: 048
  4. ASPIRIN [Concomitant]
     Route: 048
  5. MULTIVITAMIN NOS [Concomitant]
     Route: 048
  6. LEXAPRO [Concomitant]
     Route: 048
  7. KLONOPIN [Concomitant]
     Route: 048

REACTIONS (5)
  - CHILLS [None]
  - DEHYDRATION [None]
  - PAIN IN EXTREMITY [None]
  - PRURITUS [None]
  - PYREXIA [None]
